FAERS Safety Report 4354347-8 (Version None)
Quarter: 2004Q2

REPORT INFORMATION
  Report Type: 
  Country: None (occurrence: None)
  Receive Date: 20040503
  Receipt Date: 20040416
  Transmission Date: 20050107
  Serious: Yes (Other)
  Sender: FDA-Public Use
  Company Number: 04-000274

PATIENT
  Age: 47 Year
  Sex: Female
  Weight: 59.9 kg

DRUGS (1)
  1. FEMHRT [Suspect]
     Indication: MENOPAUSAL SYMPTOMS
     Dosage: 5/1000 UG, QD, ORAL
     Route: 048
     Dates: start: 20031001, end: 20040422

REACTIONS (10)
  - ABDOMINAL DISTENSION [None]
  - DEPRESSION [None]
  - DIZZINESS [None]
  - FATIGUE [None]
  - MEDICATION ERROR [None]
  - PANIC ATTACK [None]
  - PRURITUS [None]
  - SUICIDAL IDEATION [None]
  - VAGINAL HAEMORRHAGE [None]
  - VISION BLURRED [None]
